FAERS Safety Report 6210024-X (Version None)
Quarter: 2009Q2

REPORT INFORMATION
  Report Type: 
  Country: None (occurrence: None)
  Receive Date: 20090529
  Receipt Date: 20090529
  Transmission Date: 20091009
  Serious: Yes (Hospitalization)
  Sender: FDA-Public Use
  Company Number: None

PATIENT
  Age: 63 Year
  Sex: Male

DRUGS (14)
  1. CARAFATE [Suspect]
     Dosage: 1G, Q8H, PO
     Route: 048
     Dates: start: 20090301
  2. AMOXICILLIN [Suspect]
     Dosage: 500MG; BID, PO
     Route: 048
     Dates: start: 20090301
  3. FLUCONAZOLE [Suspect]
     Dosage: 100MG; QAM PO
     Route: 048
     Dates: start: 20090301
  4. PREVACID [Suspect]
     Dosage: 30MG; BID, PO
     Route: 048
     Dates: start: 20090301
  5. THROMBIN-RECEPTOR ANTAGONIST (NOT SPECIFIED) [Suspect]
     Indication: THROMBOSIS PROPHYLAXIS
     Dosage: ORAL
     Route: 048
     Dates: start: 20081029, end: 20090304
  6. THROMBIN-RECEPTOR ANTAGONIST (NOT SPECIFIED) [Suspect]
     Indication: THROMBOSIS PROPHYLAXIS
     Dosage: ORAL
     Route: 048
     Dates: start: 20090314
  7. CLARITHROMYCIN [Suspect]
     Dosage: 500MG; BID, PO
     Route: 048
     Dates: start: 20090301
  8. CARVEDILOL [Concomitant]
  9. CLOPIDOGREL [Concomitant]
  10. ASPIRIN [Concomitant]
  11. ATORVASTATIN CALCIUM [Concomitant]
  12. NORVASC [Concomitant]
  13. AUGMENTIN [Concomitant]
  14. LOVASTATIN [Concomitant]

REACTIONS (4)
  - ASTHENIA [None]
  - ATRIAL FIBRILLATION [None]
  - CEREBRAL ISCHAEMIA [None]
  - PERICARDIAL EFFUSION [None]
